FAERS Safety Report 9307047 (Version 2)
Quarter: 2013Q4

REPORT INFORMATION
  Report Type: Spontaneous
  Country: US (occurrence: US)
  Receive Date: 20130523
  Receipt Date: 20131108
  Transmission Date: 20140711
  Serious: Yes (Hospitalization)
  Sender: FDA-Public Use
  Company Number: US-B.I. PHARMACEUTICALS,INC./RIDGEFIELD-2013-BI-14261BP

PATIENT
  Age: 70 Year
  Sex: Male
  Weight: 66.68 kg

DRUGS (9)
  1. PRADAXA [Suspect]
     Indication: ANTICOAGULANT THERAPY
     Dosage: 300 MG
     Dates: start: 20111006, end: 20120904
  2. ATORVASTATIN [Concomitant]
     Dosage: 20 MG
     Route: 048
  3. ASPIRIN [Concomitant]
     Dosage: 81 MG
     Route: 048
  4. CARVEDILOL [Concomitant]
     Dosage: 50 MG
     Route: 048
  5. LISINOPRIL [Concomitant]
     Dosage: 2.5 MG
     Route: 048
  6. ALBUTEROL [Concomitant]
     Indication: WHEEZING
     Route: 055
  7. SPIRIVA [Concomitant]
     Dosage: 18 MCG
     Route: 055
  8. NITROGLYCERIN [Concomitant]
     Indication: CHEST PAIN
     Route: 060
  9. MULTIVITAMIN [Concomitant]
     Route: 048

REACTIONS (5)
  - Gastrointestinal haemorrhage [Recovered/Resolved]
  - Gastrointestinal haemorrhage [Unknown]
  - Coagulopathy [Unknown]
  - Anaemia [Unknown]
  - Bowel movement irregularity [Unknown]
